FAERS Safety Report 9248650 (Version 1)
Quarter: 2013Q1

REPORT INFORMATION
  Report Type: Spontaneous
  Country: US (occurrence: None)
  Receive Date: 20121120
  Receipt Date: 20121120
  Transmission Date: 20140127
  Serious: No
  Sender: FDA-Public Use
  Company Number: 1000038264

PATIENT
  Age: 27 Year
  Sex: Female

DRUGS (1)
  1. VIIBRYD [Suspect]
     Dosage: 1 IN 1 D
     Route: 048
     Dates: start: 20120814, end: 20120821

REACTIONS (1)
  - Headache [None]
